FAERS Safety Report 14112356 (Version 1)
Quarter: 2017Q4

REPORT INFORMATION
  Report Type: Spontaneous
  Country: US (occurrence: None)
  Receive Date: 20171020
  Receipt Date: 20171020
  Transmission Date: 20180321
  Serious: No
  Sender: FDA-Public Use
  Company Number: None

PATIENT

DRUGS (1)
  1. POTASSIUM CHLORIDE 20MEQ PER 15ML [Suspect]
     Active Substance: POTASSIUM CHLORIDE
     Route: 048

REACTIONS (1)
  - Product label confusion [None]
